FAERS Safety Report 7607688-2 (Version None)
Quarter: 2011Q3

REPORT INFORMATION
  Report Type: 
  Country: None (occurrence: None)
  Receive Date: 20110713
  Receipt Date: 20110517
  Transmission Date: 20111222
  Serious: Yes (Other)
  Sender: FDA-Public Use
  Company Number: PHHY2011US38290

PATIENT
  Sex: Female

DRUGS (1)
  1. FEMARA [Suspect]
     Indication: NEOPLASM PROPHYLAXIS
     Dosage: 2.5 MG QD
     Route: 048
     Dates: start: 20110414

REACTIONS (3)
  - VISUAL IMPAIRMENT [None]
  - NERVOUS SYSTEM DISORDER [None]
  - DYSKINESIA [None]
